FAERS Safety Report 7387566-7 (Version None)
Quarter: 2011Q1

REPORT INFORMATION
  Report Type: 
  Country: None (occurrence: None)
  Receive Date: 20110331
  Receipt Date: 20110325
  Transmission Date: 20110831
  Serious: Yes (Other)
  Sender: FDA-Public Use
  Company Number: US-BAYER-2011-026884

PATIENT
  Sex: Female

DRUGS (5)
  1. ALEVE (CAPLET) [Suspect]
     Indication: ARTHRALGIA
     Dosage: 2 DF, ONCE, BOTTLE COUNT 24S
     Route: 048
     Dates: start: 20110325
  2. ADVIL [IBUPROFEN] [Concomitant]
     Indication: PAIN IN EXTREMITY
  3. ADVIL [IBUPROFEN] [Concomitant]
     Indication: ARTHRALGIA
     Dosage: UNK
     Dates: start: 20110301
  4. ALEVE (CAPLET) [Suspect]
  5. ALEVE (CAPLET) [Suspect]
     Indication: ANALGESIC THERAPY

REACTIONS (9)
  - LOSS OF CONSCIOUSNESS [None]
  - ANXIETY [None]
  - DIZZINESS [None]
  - LIP SWELLING [None]
  - PALPITATIONS [None]
  - ABDOMINAL DISCOMFORT [None]
  - CONVULSION [None]
  - EPISTAXIS [None]
  - VOMITING [None]
